FAERS Safety Report 24843052 (Version 1)
Quarter: 2025Q1

REPORT INFORMATION
  Report Type: Report from Study
  Country: US (occurrence: US)
  Receive Date: 20250115
  Receipt Date: 20250115
  Transmission Date: 20250408
  Serious: No
  Sender: HRA PHARMA
  Company Number: US-ORG100014127-2024000137

PATIENT
  Age: 43 Year
  Sex: Female

DRUGS (9)
  1. LYSODREN [Suspect]
     Active Substance: MITOTANE
     Indication: Adrenal gland cancer
     Route: 048
     Dates: start: 20230814
  2. LYSODREN [Suspect]
     Active Substance: MITOTANE
     Indication: Adrenal gland cancer
     Route: 048
  3. acetaminophen tab 650mg ER [Concomitant]
     Indication: Product use in unapproved indication
  4. MIRALAX [Concomitant]
     Active Substance: POLYETHYLENE GLYCOL 3350
     Indication: Product use in unapproved indication
  5. modafinil tab 100mg [Concomitant]
     Indication: Product use in unapproved indication
  6. Nurtec tab 75mg ODT [Concomitant]
     Indication: Product use in unapproved indication
  7. ONDANSETRON [Concomitant]
     Active Substance: ONDANSETRON
     Indication: Product use in unapproved indication
  8. SOLU-CORTEF [Concomitant]
     Active Substance: HYDROCORTISONE SODIUM SUCCINATE
     Indication: Product use in unapproved indication
  9. Xiidra dro 5% [Concomitant]
     Indication: Product use in unapproved indication

REACTIONS (3)
  - Insomnia [Unknown]
  - Nausea [Unknown]
  - Pain [Unknown]
